FAERS Safety Report 25879841 (Version 2)
Quarter: 2025Q4

REPORT INFORMATION
  Report Type: Spontaneous
  Country: US (occurrence: US)
  Receive Date: 20251004
  Receipt Date: 20251016
  Transmission Date: 20260118
  Serious: Yes (Other)
  Sender: CSL BEHRING
  Company Number: US-BEH-2025220116

PATIENT
  Sex: Female

DRUGS (7)
  1. HAEGARDA [Suspect]
     Active Substance: HUMAN C1-ESTERASE INHIBITOR
     Indication: Hereditary angioedema
     Dosage: 8000 IU, BIW
     Route: 058
     Dates: start: 20240703
  2. HAEGARDA [Suspect]
     Active Substance: HUMAN C1-ESTERASE INHIBITOR
     Indication: Prophylaxis
  3. DANAZOL [Concomitant]
     Active Substance: DANAZOL
     Dosage: 100 MG
  4. FAMOTIDINE [Concomitant]
     Active Substance: FAMOTIDINE
     Dosage: 20 MG
  5. ICATIBANT [Concomitant]
     Active Substance: ICATIBANT ACETATE
     Dosage: 30 MG/ 3 ML
  6. LEVOTHYROXINE [Concomitant]
     Active Substance: LEVOTHYROXINE
     Dosage: 75 ?G
  7. SERTRALINE [Concomitant]
     Active Substance: SERTRALINE HYDROCHLORIDE
     Dosage: 50 MG

REACTIONS (3)
  - Hereditary angioedema [Recovered/Resolved]
  - Drug ineffective [Recovered/Resolved]
  - Laboratory test abnormal [Recovered/Resolved]
